FAERS Safety Report 11169044 (Version 1)
Quarter: 2015Q2

REPORT INFORMATION
  Report Type: Spontaneous
  Country: US (occurrence: US)
  Receive Date: 20150605
  Receipt Date: 20150605
  Transmission Date: 20150821
  Serious: Yes (Other)
  Sender: FDA-Public Use
  Company Number: US-TEVA-567731USA

PATIENT
  Sex: Female

DRUGS (1)
  1. DEXTROAMPHETAMINE SULFATE. [Suspect]
     Active Substance: DEXTROAMPHETAMINE SULFATE
     Indication: PRODUCT USED FOR UNKNOWN INDICATION
     Dosage: 5 MG AT A VARIABLE DOSE UP TO FOUR TIMES DAILY

REACTIONS (3)
  - Pruritus [Unknown]
  - Paraesthesia [Unknown]
  - Hypoaesthesia [Unknown]
